FAERS Safety Report 6639654-8 (Version None)
Quarter: 2010Q1

REPORT INFORMATION
  Report Type: 
  Country: None (occurrence: None)
  Receive Date: 20100302
  Receipt Date: 20091130
  Transmission Date: 20100710
  Serious: Yes (Hospitalization)
  Sender: FDA-Public Use
  Company Number: 214837USA

PATIENT
  Age: 89 Year
  Sex: Female

DRUGS (13)
  1. OXALIPLATIN [Suspect]
     Dosage: SEE IMAGE
     Route: 042
  2. CAPECITABINE [Concomitant]
  3. BISACODYL [Concomitant]
  4. SERETIDE [Concomitant]
  5. MECLOZINE [Concomitant]
  6. TYLOX [Concomitant]
  7. ALPRAZOLAM [Concomitant]
  8. OMEPRAZOLE [Concomitant]
  9. CYCLOSPORINE [Concomitant]
  10. METOPROLOL [Concomitant]
  11. ONDANSETRON [Concomitant]
  12. OXYCODONE HYDROCHLORIDE [Concomitant]
  13. VECTIBIX [Concomitant]

REACTIONS (4)
  - DIZZINESS [None]
  - DYSARTHRIA [None]
  - FINE MOTOR DELAY [None]
  - VASCULAR TEST ABNORMAL [None]
